FAERS Safety Report 16724525 (Version 1)
Quarter: 2019Q3

REPORT INFORMATION
  Report Type: Spontaneous
  Country: TW (occurrence: TW)
  Receive Date: 20190821
  Receipt Date: 20190821
  Transmission Date: 20191005
  Serious: Yes (Hospitalization)
  Sender: FDA-Public Use
  Company Number: TW-BRISTOL-MYERS SQUIBB COMPANY-BMS-2019-080632

PATIENT
  Age: 50 Year
  Sex: Male

DRUGS (1)
  1. NIVOLUMAB [Suspect]
     Active Substance: NIVOLUMAB
     Indication: HEPATOCELLULAR CARCINOMA
     Dosage: 200 MILLIGRAM, Q2WK
     Route: 042

REACTIONS (1)
  - Diarrhoea [Unknown]
